FAERS Safety Report 10133422 (Version 1)
Quarter: 2014Q2

REPORT INFORMATION
  Report Type: Spontaneous
  Country: JP (occurrence: JP)
  Receive Date: 20140428
  Receipt Date: 20140428
  Transmission Date: 20141212
  Serious: Yes (Hospitalization)
  Sender: FDA-Public Use
  Company Number: JP-ELI_LILLY_AND_COMPANY-JP201404006520

PATIENT
  Sex: Female

DRUGS (2)
  1. FORTEO [Suspect]
     Indication: PRODUCT USED FOR UNKNOWN INDICATION
     Dosage: UNK
     Route: 058
     Dates: start: 20140403, end: 20140411
  2. FOSAMAC [Concomitant]
     Dosage: UNK
     Dates: end: 20140402

REACTIONS (2)
  - Cerebral infarction [Unknown]
  - Dyskinesia [Not Recovered/Not Resolved]
